FAERS Safety Report 4751185-9 (Version None)
Quarter: 2005Q3

REPORT INFORMATION
  Report Type: 
  Country: None (occurrence: None)
  Receive Date: 20050822
  Receipt Date: 20050816
  Transmission Date: 20060218
  Serious: Yes (Other)
  Sender: FDA-Public Use
  Company Number: 142893USA

PATIENT
  Age: 42 Year
  Sex: Female

DRUGS (7)
  1. COPAXONE [Suspect]
     Indication: MULTIPLE SCLEROSIS
     Dates: start: 20050718
  2. NEURONTIN [Concomitant]
  3. PROVIGIL [Concomitant]
  4. ORAL CONTRACEPTIVE [Concomitant]
  5. PRILOSEC [Concomitant]
  6. ZANTAC [Concomitant]
  7. PAXIL [Concomitant]

REACTIONS (5)
  - CARDIAC DISORDER [None]
  - HEART RATE INCREASED [None]
  - POST PROCEDURAL COMPLICATION [None]
  - RESPIRATORY ARREST [None]
  - WRONG TECHNIQUE IN DRUG USAGE PROCESS [None]
